FAERS Safety Report 5058029-9 (Version None)
Quarter: 2006Q3

REPORT INFORMATION
  Report Type: 
  Country: None (occurrence: None)
  Receive Date: 20060721
  Receipt Date: 20060622
  Transmission Date: 20061208
  Serious: Yes (Other)
  Sender: FDA-Public Use
  Company Number: US-ROCHE-453085

PATIENT
  Age: 59 Year
  Sex: Female
  Weight: 88.5 kg

DRUGS (1)
  1. BONIVA [Suspect]
     Indication: DRUG USE FOR UNKNOWN INDICATION
     Route: 065
     Dates: start: 20060303

REACTIONS (3)
  - APHTHOUS STOMATITIS [None]
  - STOMATITIS [None]
  - SWOLLEN TONGUE [None]
